FAERS Safety Report 9629630 (Version 3)
Quarter: 2013Q4

REPORT INFORMATION
  Report Type: Spontaneous
  Country: JP (occurrence: JP)
  Receive Date: 20131017
  Receipt Date: 20131210
  Transmission Date: 20140711
  Serious: Yes (Hospitalization)
  Sender: FDA-Public Use
  Company Number: JP-ABBVIE-12P-087-0897678-00

PATIENT
  Age: 63 Year
  Sex: Female

DRUGS (8)
  1. HUMIRA 40 MG/ 0.8 ML PRE-FILLED SYRINGE [Suspect]
     Indication: RHEUMATOID ARTHRITIS
     Route: 058
     Dates: start: 20110810, end: 20111214
  2. METHOTREXATE [Concomitant]
     Indication: RHEUMATOID ARTHRITIS
     Route: 048
     Dates: start: 20100212
  3. METHOTREXATE [Concomitant]
     Route: 048
     Dates: start: 20100224
  4. METHOTREXATE [Concomitant]
     Route: 048
     Dates: start: 20110115, end: 20111224
  5. ADRENAL HORMONE PREPARATIONS [Concomitant]
     Indication: RHEUMATOID ARTHRITIS
     Dosage: 5 MG DAILY
     Route: 048
     Dates: start: 201110, end: 201201
  6. PREDNISOLONE [Concomitant]
     Indication: PRODUCT USED FOR UNKNOWN INDICATION
     Dates: start: 20100212
  7. FAMOTIDINE [Concomitant]
     Indication: GASTRIC ULCER
     Dates: start: 20100212
  8. ISONIAZID [Concomitant]
     Indication: TUBERCULOSIS
     Route: 048
     Dates: start: 20100219, end: 20111013

REACTIONS (2)
  - Lymph node tuberculosis [Recovering/Resolving]
  - Neck mass [Unknown]
